FAERS Safety Report 23727172 (Version 1)
Quarter: 2024Q2

REPORT INFORMATION
  Report Type: Spontaneous
  Country: US (occurrence: US)
  Receive Date: 20240410
  Receipt Date: 20240410
  Transmission Date: 20240716
  Serious: No
  Sender: FDA-Public Use
  Company Number: US-TEVA-VS-3167448

PATIENT
  Age: 79 Year
  Sex: Female

DRUGS (6)
  1. AUSTEDO XR [Suspect]
     Active Substance: DEUTETRABENAZINE
     Indication: Periodic limb movement disorder
     Dosage: TAKE TABLET (ALONG WITH ONE 6MG XR TABLET) BY MOUTH DAILY, TOTAL?DOSE DAILY
     Route: 048
  2. Albuterol SU AER 108 (90 [Concomitant]
     Indication: Product used for unknown indication
  3. PANTOPRAZOLE TBE 40MG [Concomitant]
     Indication: Product used for unknown indication
  4. BREZTRI AERO AER 160-9-4 [Concomitant]
     Indication: Product used for unknown indication
  5. IPRATROPIUM-SOL 0.5-2.5 [Concomitant]
     Indication: Product used for unknown indication
  6. ROFLUMILAST TAB 500MCG [Concomitant]
     Indication: Product used for unknown indication

REACTIONS (1)
  - Drug ineffective [Recovered/Resolved]
